FAERS Safety Report 6082704-0 (Version None)
Quarter: 2009Q1

REPORT INFORMATION
  Report Type: 
  Country: None (occurrence: None)
  Receive Date: 20090202
  Receipt Date: 20070816
  Transmission Date: 20090719
  Serious: Yes (Hospitalization)
  Sender: FDA-Public Use
  Company Number: 266625

PATIENT
  Age: 30 Year
  Sex: Female

DRUGS (1)
  1. NOVOLOG [Suspect]
     Indication: TYPE 1 DIABETES MELLITUS
     Dosage: 20 IU, TID, SUBCUTANEOUS
     Route: 058
     Dates: start: 20010101

REACTIONS (2)
  - DEVICE LEAKAGE [None]
  - DIABETIC KETOACIDOSIS [None]
